FAERS Safety Report 5590357-0 (Version None)
Quarter: 2008Q1

REPORT INFORMATION
  Report Type: 
  Country: None (occurrence: None)
  Receive Date: 20080109
  Receipt Date: 20080103
  Transmission Date: 20080703
  Serious: Yes (Death, Hospitalization)
  Sender: FDA-Public Use
  Company Number: CLOF-1000003

PATIENT
  Age: 24 Year
  Sex: Male
  Weight: 68.8 kg

DRUGS (11)
  1. CLOLAR [Suspect]
     Indication: ACUTE LYMPHOCYTIC LEUKAEMIA
     Dosage: 40 MG/M2, QDX5, INTRAVENOUS
     Route: 042
     Dates: start: 20071113, end: 20071117
  2. CYTARABINE [Suspect]
     Indication: ACUTE LYMPHOCYTIC LEUKAEMIA
     Dosage: 1 G/M2, QDX5, INTRAVENOUS
     Route: 042
     Dates: start: 20071113, end: 20071117
  3. GENTAMYCIN-MP (GENTAMICIN SULFATE) [Concomitant]
  4. NEURONTIN [Concomitant]
  5. MORPHINE [Concomitant]
  6. FLAGYL [Concomitant]
  7. MYCOSTATIN [Concomitant]
  8. VORICONAZOLE (VORICONAZOLE) [Concomitant]
  9. ZOFRAN [Concomitant]
  10. KEPPRA [Concomitant]
  11. VANCOMYCIN HYDROCHLORIDE [Concomitant]

REACTIONS (10)
  - ARTHRITIS INFECTIVE [None]
  - CAECITIS [None]
  - ENTEROBACTER INFECTION [None]
  - ENTEROCOLITIS INFECTIOUS [None]
  - FUNGAL INFECTION [None]
  - HYPOTENSION [None]
  - POST PROCEDURAL COMPLICATION [None]
  - PSEUDOMONAS INFECTION [None]
  - SEPSIS [None]
  - WHITE BLOOD CELL COUNT DECREASED [None]
